FAERS Safety Report 14013797 (Version 1)
Quarter: 2017Q3

REPORT INFORMATION
  Report Type: Spontaneous
  Country: JP (occurrence: JP)
  Receive Date: 20170926
  Receipt Date: 20170926
  Transmission Date: 20171128
  Serious: Yes (Other)
  Sender: FDA-Public Use
  Company Number: JP-GILEAD-2017-0294645

PATIENT
  Age: 56 Year
  Sex: Female

DRUGS (4)
  1. SOVALDI [Suspect]
     Active Substance: SOFOSBUVIR
     Indication: CHRONIC HEPATITIS C
     Dosage: UNK
     Route: 065
  2. RIBAVIRIN. [Concomitant]
     Active Substance: RIBAVIRIN
     Indication: CHRONIC HEPATITIS C
     Route: 065
  3. JIDABOKUIPPO [Suspect]
     Active Substance: HERBALS
     Indication: BACK PAIN
     Route: 065
  4. TOKISHAKUYAKUSAN                   /08000701/ [Suspect]
     Active Substance: HERBALS
     Indication: MENOPAUSAL SYMPTOMS
     Route: 065

REACTIONS (1)
  - Interstitial lung disease [Recovered/Resolved]
